FAERS Safety Report 13513912 (Version 4)
Quarter: 2017Q2

REPORT INFORMATION
  Report Type: Report from Study
  Country: US (occurrence: US)
  Receive Date: 20170504
  Receipt Date: 20170602
  Transmission Date: 20170830
  Serious: Yes (Hospitalization, Other)
  Sender: FDA-Public Use
  Company Number: US-GILEAD-2017-0270125

PATIENT
  Age: 71 Year
  Sex: Male

DRUGS (2)
  1. IDELALISIB [Suspect]
     Active Substance: IDELALISIB
     Dosage: 150 MG, BID
     Route: 048
     Dates: start: 20160526
  2. IDELALISIB [Suspect]
     Active Substance: IDELALISIB
     Indication: CHRONIC LYMPHOCYTIC LEUKAEMIA
     Dosage: 150 MG, UNK
     Route: 048

REACTIONS (8)
  - Pneumonia [Unknown]
  - Infection [Not Recovered/Not Resolved]
  - Weight increased [Unknown]
  - Vomiting [Unknown]
  - Colostomy [Unknown]
  - Diarrhoea [Unknown]
  - Body temperature increased [Unknown]
  - Catheter placement [Unknown]

NARRATIVE: CASE EVENT DATE: 201704
